FAERS Safety Report 14749991 (Version 1)
Quarter: 2018Q2

REPORT INFORMATION
  Report Type: Spontaneous
  Country: IT (occurrence: IT)
  Receive Date: 20180412
  Receipt Date: 20180412
  Transmission Date: 20180711
  Serious: Yes (Other)
  Sender: FDA-Public Use
  Company Number: IT-ABBVIE-18S-083-2318183-00

PATIENT

DRUGS (2)
  1. DEPAKINE CHRONO [Suspect]
     Active Substance: VALPROATE SODIUM
     Indication: BIPOLAR DISORDER
     Route: 048
  2. DEPAKIN [Suspect]
     Active Substance: VALPROATE SODIUM
     Indication: BIPOLAR DISORDER
     Route: 048

REACTIONS (2)
  - Bipolar disorder [Unknown]
  - Drug ineffective [Unknown]
